FAERS Safety Report 24121903 (Version 3)
Quarter: 2024Q3

REPORT INFORMATION
  Report Type: Spontaneous
  Country: US (occurrence: US)
  Receive Date: 20240722
  Receipt Date: 20240904
  Transmission Date: 20241016
  Serious: No
  Sender: SANOFI AVENTIS
  Company Number: US-SA-SAC20240716001309

PATIENT
  Age: 30 Year
  Sex: Female

DRUGS (8)
  1. TZIELD [Suspect]
     Active Substance: TEPLIZUMAB-MZWV
     Indication: Diabetes prophylaxis
     Dosage: UNK
     Route: 042
     Dates: start: 20240710, end: 20240711
  2. TZIELD [Suspect]
     Active Substance: TEPLIZUMAB-MZWV
     Dosage: 124.45 UG, 1X
     Route: 042
     Dates: start: 20240712, end: 20240712
  3. TZIELD [Suspect]
     Active Substance: TEPLIZUMAB-MZWV
     Dosage: 241.25 UG, 1X
     Route: 042
     Dates: start: 20240713, end: 20240713
  4. TZIELD [Suspect]
     Active Substance: TEPLIZUMAB-MZWV
     Dosage: 482.5 UG, 1X
     Route: 042
     Dates: start: 20240714, end: 20240714
  5. TZIELD [Suspect]
     Active Substance: TEPLIZUMAB-MZWV
     Dosage: 965 UG, 1X
     Route: 042
     Dates: start: 20240715, end: 20240715
  6. TZIELD [Suspect]
     Active Substance: TEPLIZUMAB-MZWV
     Dosage: 1987.9 UG, QD
     Route: 042
     Dates: start: 20240716, end: 202407
  7. TZIELD [Suspect]
     Active Substance: TEPLIZUMAB-MZWV
     Dosage: UNK
     Route: 042
     Dates: start: 202407, end: 20240723
  8. IBUPROFEN [Concomitant]
     Active Substance: IBUPROFEN
     Indication: Prophylaxis
     Dosage: UNK
     Dates: start: 20240712

REACTIONS (12)
  - Brain fog [Recovered/Resolved]
  - Discomfort [Unknown]
  - Malaise [Unknown]
  - Feeling cold [Unknown]
  - Chills [Unknown]
  - Dyspnoea [Not Recovered/Not Resolved]
  - Arthralgia [Recovering/Resolving]
  - Fatigue [Recovered/Resolved]
  - Vomiting [Unknown]
  - Urticaria [Recovered/Resolved]
  - Nausea [Unknown]
  - Headache [Recovered/Resolved]

NARRATIVE: CASE EVENT DATE: 20240701
